FAERS Safety Report 13600708 (Version 1)
Quarter: 2017Q2

REPORT INFORMATION
  Report Type: Spontaneous
  Country: AR (occurrence: AR)
  Receive Date: 20170601
  Receipt Date: 20170601
  Transmission Date: 20170830
  Serious: Yes (Death, Life-Threatening, Hospitalization, Other)
  Sender: FDA-Public Use
  Company Number: AR-ACCORD-052027

PATIENT
  Age: 55 Year
  Sex: Female

DRUGS (2)
  1. MEPREDNISONE [Suspect]
     Active Substance: MEPREDNISONE
     Indication: RENAL TRANSPLANT
     Dosage: AS IMMUNOSUPPRESSION FOR KIDNEY TRANSPLANT
  2. TACROLIMUS. [Suspect]
     Active Substance: TACROLIMUS
     Indication: RENAL TRANSPLANT

REACTIONS (2)
  - Phaehyphomycosis [Unknown]
  - Necrotising fasciitis [Fatal]
